FAERS Safety Report 4696583-7 (Version None)
Quarter: 2005Q2

REPORT INFORMATION
  Report Type: 
  Country: None (occurrence: None)
  Receive Date: 20050620
  Receipt Date: 20050330
  Transmission Date: 20051028
  Serious: Yes (Other)
  Sender: FDA-Public Use
  Company Number: 200512574US

PATIENT
  Age: 42 Year
  Sex: Male
  Weight: 75 kg

DRUGS (6)
  1. LANTUS [Suspect]
     Indication: DIABETES MELLITUS INSULIN-DEPENDENT
     Dosage: 10 U QAM
     Dates: start: 20050320
  2. LANTUS [Suspect]
     Indication: DIABETES MELLITUS INSULIN-DEPENDENT
     Dosage: 20 U QAM
  3. LANTUS [Suspect]
     Indication: DIABETES MELLITUS INSULIN-DEPENDENT
     Dosage: 18 U QAM
     Dates: end: 20050325
  4. ZESTRIL [Concomitant]
  5. INSULIN HUMAN, INSULIN HUMAN INJECTION, ISOPHANE (NOVOLIN 70/30) [Concomitant]
  6. REGULAR INSULIN [Concomitant]

REACTIONS (5)
  - ABDOMINAL PAIN UPPER [None]
  - BLOOD GLUCOSE INCREASED [None]
  - FLATULENCE [None]
  - INJECTION SITE REACTION [None]
  - SHOCK HYPOGLYCAEMIC [None]
